FAERS Safety Report 21292699 (Version 4)
Quarter: 2023Q1

REPORT INFORMATION
  Report Type: Other
  Country: US (occurrence: US)
  Receive Date: 20220905
  Receipt Date: 20230123
  Transmission Date: 20230417
  Serious: Yes (Hospitalization, Other)
  Sender: FDA-Public Use
  Company Number: US-GBT-015775

PATIENT
  Sex: Male
  Weight: 53 kg

DRUGS (1)
  1. OXBRYTA [Suspect]
     Active Substance: VOXELOTOR
     Indication: Sickle cell disease
     Route: 048

REACTIONS (5)
  - Thrombosis [Unknown]
  - Sickle cell anaemia with crisis [Not Recovered/Not Resolved]
  - COVID-19 [Recovered/Resolved]
  - Blood magnesium decreased [Unknown]
  - Pyrexia [Recovered/Resolved]

NARRATIVE: CASE EVENT DATE: 20220101
